FAERS Safety Report 6085911-6 (Version None)
Quarter: 2009Q1

REPORT INFORMATION
  Report Type: 
  Country: None (occurrence: None)
  Receive Date: 20090217
  Receipt Date: 20080214
  Transmission Date: 20090719
  Serious: Yes (Life-Threatening, Other)
  Sender: FDA-Public Use
  Company Number: MC200800092

PATIENT
  Age: 44 Year
  Sex: Male
  Weight: 75 kg

DRUGS (4)
  1. ANGIOMAX [Suspect]
     Indication: PERCUTANEOUS CORONARY INTERVENTION
     Dosage: 11 ML (5MG/ML), BOLUS, INTRAVENEOUS : 26 ML (5MG/ML), HR, INTRAVENOUS
     Route: 040
     Dates: start: 20080214, end: 20080214
  2. ANGIOMAX [Suspect]
     Indication: PERCUTANEOUS CORONARY INTERVENTION
     Dosage: 11 ML (5MG/ML), BOLUS, INTRAVENEOUS : 26 ML (5MG/ML), HR, INTRAVENOUS
     Route: 040
     Dates: start: 20080214, end: 20080214
  3. FENTANYL-100 [Concomitant]
  4. VERSED [Concomitant]

REACTIONS (2)
  - CORONARY ARTERY THROMBOSIS [None]
  - DRUG INEFFECTIVE [None]
